FAERS Safety Report 6306066-6 (Version None)
Quarter: 2009Q3

REPORT INFORMATION
  Report Type: 
  Country: None (occurrence: None)
  Receive Date: 20090810
  Receipt Date: 20090810
  Transmission Date: 20100115
  Serious: Yes (Life-Threatening, Hospitalization, Disabling)
  Sender: FDA-Public Use
  Company Number: None

PATIENT
  Age: 38 Year
  Sex: Male
  Weight: 60.3284 kg

DRUGS (3)
  1. SEROQUEL [Suspect]
     Indication: BIPOLAR DISORDER
     Dosage: 200MG EVERY 6 HRS PO
     Route: 048
     Dates: start: 20090701, end: 20090810
  2. LUVOX [Suspect]
     Indication: BIPOLAR DISORDER
     Dosage: 100MG EVERY 6 HRS PO
     Route: 048
     Dates: start: 20090213, end: 20090331
  3. ABILIFY [Suspect]
     Indication: BIPOLAR DISORDER
     Dosage: 50MG EVERY 6 HRS PO
     Route: 048
     Dates: start: 20090213, end: 20090331

REACTIONS (5)
  - AGGRESSION [None]
  - CONVULSION [None]
  - INSOMNIA [None]
  - MANIA [None]
  - WEIGHT DECREASED [None]
